FAERS Safety Report 9449841 (Version 1)
Quarter: 2013Q3

REPORT INFORMATION
  Report Type: Report from Study
  Country: BR (occurrence: BR)
  Receive Date: 20130809
  Receipt Date: 20130809
  Transmission Date: 20140515
  Serious: Yes (Hospitalization, Other)
  Sender: FDA-Public Use
  Company Number: PHHY2013BR084847

PATIENT
  Age: 57 Year
  Sex: Male

DRUGS (4)
  1. DIOVAN HCT [Suspect]
     Indication: HYPERTENSION
     Dosage: 1 DF, DAILY
     Route: 048
     Dates: start: 2006, end: 2008
  2. DIOVAN AMLO FIX [Suspect]
     Indication: HYPERTENSION
     Dosage: 1 DF (160/5 MG), DAILY
     Route: 048
     Dates: start: 2008
  3. DIOVAN AMLO FIX [Suspect]
     Dosage: 160/5 MG
  4. CONCOR [Concomitant]
     Indication: HYPERTENSION
     Dosage: 1 DF (10 MG), DAILY
     Route: 048
     Dates: start: 2006

REACTIONS (2)
  - Pneumonia [Recovered/Resolved]
  - Lung disorder [Recovered/Resolved]
